FAERS Safety Report 13123538 (Version 1)
Quarter: 2017Q1

REPORT INFORMATION
  Report Type: Spontaneous
  Country: US (occurrence: US)
  Receive Date: 20170117
  Receipt Date: 20170117
  Transmission Date: 20170428
  Serious: Yes (Death)
  Sender: FDA-Public Use
  Company Number: US-ACTELION-A-US2017-147983

PATIENT
  Age: 42 Year
  Sex: Female

DRUGS (4)
  1. MORPHINE [Concomitant]
     Active Substance: MORPHINE
  2. FOLIC ACID. [Concomitant]
     Active Substance: FOLIC ACID
  3. FUROSEMIDE. [Concomitant]
     Active Substance: FUROSEMIDE
  4. OPSUMIT [Suspect]
     Active Substance: MACITENTAN
     Indication: PULMONARY ARTERIAL HYPERTENSION
     Dosage: 10 MG, QD
     Route: 048
     Dates: start: 20161027

REACTIONS (1)
  - Death [Fatal]

NARRATIVE: CASE EVENT DATE: 20170103
